FAERS Safety Report 25039145 (Version 1)
Quarter: 2025Q1

REPORT INFORMATION
  Report Type: Spontaneous
  Country: US (occurrence: US)
  Receive Date: 20250305
  Receipt Date: 20250305
  Transmission Date: 20250408
  Serious: Yes (Hospitalization, Other)
  Sender: GLAXOSMITHKLINE
  Company Number: US-GSK-US2025GSK025795

PATIENT

DRUGS (2)
  1. BUPROPION [Interacting]
     Active Substance: BUPROPION
     Indication: Major depression
  2. ARIPIPRAZOLE [Interacting]
     Active Substance: ARIPIPRAZOLE
     Indication: Major depression

REACTIONS (3)
  - Respiratory dyskinesia [Recovered/Resolved]
  - Tardive dyskinesia [Recovering/Resolving]
  - Drug interaction [Unknown]
